FAERS Safety Report 8054975-2 (Version None)
Quarter: 2012Q1

REPORT INFORMATION
  Report Type: 
  Country: None (occurrence: None)
  Receive Date: 20120119
  Receipt Date: 20120116
  Transmission Date: 20120608
  Serious: Yes (Hospitalization, Other)
  Sender: FDA-Public Use
  Company Number: FI-PFIZER INC-2012000071

PATIENT
  Age: 26 Year
  Sex: Female

DRUGS (2)
  1. NUVARING [Concomitant]
     Indication: CONTRACEPTION
  2. SUTENT [Suspect]
     Indication: ENDOCRINE NEOPLASM MALIGNANT
     Dosage: 12.5 MG, 1X/DAY
     Route: 048
     Dates: start: 20110411

REACTIONS (2)
  - ACUTE MYOCARDIAL INFARCTION [None]
  - ABDOMINAL DISCOMFORT [None]
